FAERS Safety Report 21952403 (Version 1)
Quarter: 2023Q1

REPORT INFORMATION
  Report Type: Spontaneous
  Country: FR (occurrence: FR)
  Receive Date: 20230203
  Receipt Date: 20230203
  Transmission Date: 20230418
  Serious: Yes (Death, Hospitalization, Other)
  Sender: FDA-Public Use
  Company Number: FR-SA-SAC20230130000731

PATIENT
  Age: 64 Year
  Sex: Male

DRUGS (2)
  1. DEXAMETHASONE [Suspect]
     Active Substance: DEXAMETHASONE
     Indication: COVID-19
     Dosage: 6MG 12MG
     Route: 042
     Dates: start: 20210803
  2. LOVENOX [Concomitant]
     Active Substance: ENOXAPARIN SODIUM
     Indication: Pulmonary embolism
     Dosage: 0.8X2
     Route: 058
     Dates: start: 20210804, end: 20210902

REACTIONS (3)
  - Lung disorder [Fatal]
  - Superinfection bacterial [Fatal]
  - Septic shock [Fatal]

NARRATIVE: CASE EVENT DATE: 20210101
